FAERS Safety Report 8614509-8 (Version None)
Quarter: 2012Q3

REPORT INFORMATION
  Report Type: 
  Country: None (occurrence: None)
  Receive Date: 20120823
  Receipt Date: 20120821
  Transmission Date: 20120928
  Serious: Yes (Other)
  Sender: FDA-Public Use
  Company Number: PHEH2011US00467

PATIENT
  Sex: Female

DRUGS (11)
  1. CELEXA [Concomitant]
  2. PRAVASTATIN [Concomitant]
  3. REVLIMID [Concomitant]
     Dosage: 5 MG, QD
     Route: 048
  4. OMEPRAZOLE [Concomitant]
     Dosage: 20 MG, QD
     Route: 048
  5. FLOMAX [Concomitant]
  6. VICODIN [Concomitant]
  7. OXYCONTIN [Concomitant]
  8. OXYCODONE HCL [Concomitant]
  9. ZOMETA [Suspect]
     Dosage: 4 MG, QMO
  10. METFORMIN [Concomitant]
  11. EFFEXOR [Concomitant]

REACTIONS (84)
  - OSTEONECROSIS OF JAW [None]
  - INJURY [None]
  - PHYSICAL DISABILITY [None]
  - DYSPNOEA [None]
  - MULTIPLE MYELOMA [None]
  - PLEURAL EFFUSION [None]
  - BONE LESION [None]
  - HYPERTENSION [None]
  - MYOCARDIAL INFARCTION [None]
  - RENAL FAILURE ACUTE [None]
  - MUCOSAL INFLAMMATION [None]
  - FLANK PAIN [None]
  - DEPRESSION [None]
  - CHORIORETINAL ATROPHY [None]
  - VITREOUS DETACHMENT [None]
  - STRESS URINARY INCONTINENCE [None]
  - URINARY RETENTION [None]
  - BONE PAIN [None]
  - INFECTION [None]
  - TYPE 2 DIABETES MELLITUS [None]
  - BACTERAEMIA [None]
  - IRON DEFICIENCY ANAEMIA [None]
  - BRONCHITIS [None]
  - GASTROOESOPHAGEAL REFLUX DISEASE [None]
  - CROHN'S DISEASE [None]
  - EXPOSED BONE IN JAW [None]
  - ERYTHEMA [None]
  - MYOPIA [None]
  - PRESBYOPIA [None]
  - INTERVERTEBRAL DISC SPACE NARROWING [None]
  - PANCYTOPENIA [None]
  - BARTHOLIN'S CYST [None]
  - NEUTROPENIA [None]
  - ATELECTASIS [None]
  - HYPOAESTHESIA [None]
  - ANXIETY [None]
  - OVARIAN CYST [None]
  - HYPOKALAEMIA [None]
  - UPPER RESPIRATORY TRACT INFECTION [None]
  - BONE NEOPLASM MALIGNANT [None]
  - PATHOLOGICAL FRACTURE [None]
  - RED BLOOD CELL SEDIMENTATION RATE INCREASED [None]
  - GASTROINTESTINAL HAEMORRHAGE [None]
  - URGE INCONTINENCE [None]
  - EYE PAIN [None]
  - JOINT EFFUSION [None]
  - FRACTURE NONUNION [None]
  - HAEMORRHOIDS [None]
  - UPPER LIMB FRACTURE [None]
  - HEPATITIS [None]
  - GASTRIC CANCER [None]
  - SPINAL COMPRESSION FRACTURE [None]
  - HORDEOLUM [None]
  - CONSTIPATION [None]
  - RETINAL DEGENERATION [None]
  - NASAL CONGESTION [None]
  - DEFORMITY [None]
  - OSTEOMYELITIS [None]
  - RHINITIS ALLERGIC [None]
  - HUMERUS FRACTURE [None]
  - ASPIRATION BONE MARROW [None]
  - HYPERLIPIDAEMIA [None]
  - THROMBOCYTOPENIA [None]
  - MENORRHAGIA [None]
  - ASTIGMATISM [None]
  - BLADDER SPASM [None]
  - CHRONIC SINUSITIS [None]
  - RENAL CYST [None]
  - OSTEOARTHRITIS [None]
  - COLITIS [None]
  - ARTHROPATHY [None]
  - SPINAL OSTEOARTHRITIS [None]
  - PRODUCTIVE COUGH [None]
  - MICTURITION URGENCY [None]
  - DYSURIA [None]
  - FALL [None]
  - PAIN [None]
  - EMOTIONAL DISTRESS [None]
  - HIATUS HERNIA [None]
  - DIVERTICULUM [None]
  - INTERVERTEBRAL DISC DISORDER [None]
  - INSOMNIA [None]
  - ABDOMINAL PAIN [None]
  - COSTOCHONDRITIS [None]
